FAERS Safety Report 5622434-X (Version None)
Quarter: 2008Q1

REPORT INFORMATION
  Report Type: 
  Country: None (occurrence: None)
  Receive Date: 20080114
  Receipt Date: 20070731
  Transmission Date: 20080703
  Serious: Yes (Other)
  Sender: FDA-Public Use
  Company Number: A03200704927

PATIENT
  Age: 66 Year
  Sex: Male
  Weight: 101.58 kg

DRUGS (14)
  1. CLOPIDOGREL [Suspect]
     Indication: CORONARY ARTERIAL STENT INSERTION
     Dosage: 75 MG QD - ORAL
     Route: 048
     Dates: start: 20030101
  2. ALLOPURINOL [Concomitant]
  3. METOPROLOL SUCCINATE [Concomitant]
  4. ACETYLSALICYLIC ACID SRT [Concomitant]
  5. HYDROCHLOROTHIAZIDE [Concomitant]
  6. VITAMIN CAP [Concomitant]
  7. CINNAMON OIL [Concomitant]
  8. UBIDECARENONE [Concomitant]
  9. VITAMIN B [Concomitant]
  10. ASCORBIC ACID [Concomitant]
  11. FISH OIL [Concomitant]
  12. ROSIGLITAZONE MALEATE [Concomitant]
  13. METFORMIN HCL [Concomitant]
  14. DIFLUNISAL [Concomitant]

REACTIONS (5)
  - CORONARY ARTERY OCCLUSION [None]
  - GAIT DISTURBANCE [None]
  - HYPOAESTHESIA [None]
  - PAIN [None]
  - PHARMACEUTICAL PRODUCT COUNTERFEIT [None]
